FAERS Safety Report 25119535 (Version 1)
Quarter: 2025Q1

REPORT INFORMATION
  Report Type: Report from Study
  Country: JP (occurrence: JP)
  Receive Date: 20250325
  Receipt Date: 20250325
  Transmission Date: 20250409
  Serious: Yes (Hospitalization, Other)
  Sender: RECORDATI
  Company Number: JP-002147023-NVSJ2019JP002848

PATIENT
  Age: 47 Year
  Sex: Female
  Weight: 58 kg

DRUGS (40)
  1. PASIREOTIDE [Suspect]
     Active Substance: PASIREOTIDE
     Indication: Pituitary-dependent Cushing^s syndrome
     Route: 030
     Dates: start: 20181025
  2. PASIREOTIDE [Suspect]
     Active Substance: PASIREOTIDE
     Route: 030
     Dates: start: 20181220
  3. PASIREOTIDE [Suspect]
     Active Substance: PASIREOTIDE
     Route: 030
     Dates: start: 20190214
  4. PASIREOTIDE [Suspect]
     Active Substance: PASIREOTIDE
     Route: 030
     Dates: start: 20190411
  5. PASIREOTIDE [Suspect]
     Active Substance: PASIREOTIDE
     Route: 030
     Dates: start: 20190606
  6. PASIREOTIDE [Suspect]
     Active Substance: PASIREOTIDE
     Route: 030
     Dates: start: 20190801
  7. PASIREOTIDE [Suspect]
     Active Substance: PASIREOTIDE
     Route: 030
     Dates: start: 20191010
  8. PASIREOTIDE [Suspect]
     Active Substance: PASIREOTIDE
     Route: 030
     Dates: start: 20191212, end: 20200206
  9. PASIREOTIDE [Suspect]
     Active Substance: PASIREOTIDE
     Route: 030
     Dates: start: 20200206
  10. PASIREOTIDE [Suspect]
     Active Substance: PASIREOTIDE
     Route: 030
     Dates: start: 20200402
  11. PASIREOTIDE [Suspect]
     Active Substance: PASIREOTIDE
     Route: 030
     Dates: start: 20200622
  12. PASIREOTIDE [Suspect]
     Active Substance: PASIREOTIDE
     Route: 030
     Dates: start: 20200813
  13. PASIREOTIDE [Suspect]
     Active Substance: PASIREOTIDE
     Route: 030
     Dates: start: 20201008
  14. PASIREOTIDE [Suspect]
     Active Substance: PASIREOTIDE
     Route: 030
     Dates: start: 20201203
  15. PASIREOTIDE [Suspect]
     Active Substance: PASIREOTIDE
     Route: 030
     Dates: start: 20210204
  16. PASIREOTIDE [Suspect]
     Active Substance: PASIREOTIDE
     Route: 030
     Dates: start: 20210401
  17. PASIREOTIDE [Suspect]
     Active Substance: PASIREOTIDE
     Route: 030
     Dates: start: 20210603
  18. PASIREOTIDE [Suspect]
     Active Substance: PASIREOTIDE
     Route: 030
     Dates: start: 20210804
  19. PASIREOTIDE [Suspect]
     Active Substance: PASIREOTIDE
     Route: 030
     Dates: start: 20211014
  20. PASIREOTIDE [Suspect]
     Active Substance: PASIREOTIDE
  21. PASIREOTIDE [Suspect]
     Active Substance: PASIREOTIDE
  22. OSILODROSTAT [Suspect]
     Active Substance: OSILODROSTAT
     Indication: Pituitary-dependent Cushing^s syndrome
  23. OSILODROSTAT [Suspect]
     Active Substance: OSILODROSTAT
  24. METYRAPONE [Suspect]
     Active Substance: METYRAPONE
     Indication: Pituitary-dependent Cushing^s syndrome
     Route: 048
     Dates: start: 20181025
  25. METYRAPONE [Suspect]
     Active Substance: METYRAPONE
     Indication: Glucocorticoid deficiency
     Route: 048
  26. METYRAPONE [Suspect]
     Active Substance: METYRAPONE
     Route: 048
  27. METYRAPONE [Suspect]
     Active Substance: METYRAPONE
     Route: 048
  28. METYRAPONE [Suspect]
     Active Substance: METYRAPONE
     Route: 048
  29. CABERGOLINE [Concomitant]
     Active Substance: CABERGOLINE
     Indication: Pituitary-dependent Cushing^s syndrome
     Route: 048
  30. CABERGOLINE [Concomitant]
     Active Substance: CABERGOLINE
     Route: 048
  31. CABERGOLINE [Concomitant]
     Active Substance: CABERGOLINE
     Route: 048
  32. CABERGOLINE [Concomitant]
     Active Substance: CABERGOLINE
     Route: 048
  33. CABERGOLINE [Concomitant]
     Active Substance: CABERGOLINE
     Route: 048
  34. CABERGOLINE [Concomitant]
     Active Substance: CABERGOLINE
     Route: 048
  35. CABERGOLINE [Concomitant]
     Active Substance: CABERGOLINE
     Route: 048
  36. ROSUVASTATIN [Concomitant]
     Active Substance: ROSUVASTATIN
     Indication: Hyperlipidaemia
     Route: 048
     Dates: start: 20181025
  37. SPIRONOLACTONE [Concomitant]
     Active Substance: SPIRONOLACTONE
     Indication: Hypertension
     Route: 048
  38. NIFEDIPINE [Concomitant]
     Active Substance: NIFEDIPINE
     Indication: Hypertension
     Route: 048
  39. ALFACALCIDOL [Concomitant]
     Active Substance: ALFACALCIDOL
     Indication: Osteoporosis
     Route: 048
  40. ALENDRONATE SODIUM [Concomitant]
     Active Substance: ALENDRONATE SODIUM
     Indication: Osteoporosis
     Route: 048

REACTIONS (5)
  - Hyperglycaemia [Recovered/Resolved]
  - Glucocorticoid deficiency [Recovered/Resolved]
  - Metabolic disorder [Unknown]
  - Cortisol decreased [Unknown]
  - Therapeutic product effect incomplete [Recovered/Resolved]

NARRATIVE: CASE EVENT DATE: 20190704
